FAERS Safety Report 7673763-X (Version None)
Quarter: 2011Q3

REPORT INFORMATION
  Report Type: 
  Country: None (occurrence: None)
  Receive Date: 20110810
  Receipt Date: 20110802
  Transmission Date: 20111222
  Serious: Yes (Other)
  Sender: FDA-Public Use
  Company Number: JP-ASTELLAS-2011JP004593

PATIENT
  Age: 75 Year
  Sex: Female

DRUGS (2)
  1. PROGRAF [Suspect]
     Indication: RHEUMATOID ARTHRITIS
     Dosage: 2 MG, UNKNOWN/D
     Route: 048
  2. ENBREL [Concomitant]
     Dosage: UNK
     Route: 065

REACTIONS (2)
  - MENINGITIS [None]
  - WEGENER'S GRANULOMATOSIS [None]
